FAERS Safety Report 10075489 (Version 2)
Quarter: 2014Q2

REPORT INFORMATION
  Report Type: Report from Study
  Country: CA (occurrence: CA)
  Receive Date: 20140414
  Receipt Date: 20140422
  Transmission Date: 20141212
  Serious: Yes (Other)
  Sender: FDA-Public Use
  Company Number: CA-JNJFOC-20140407342

PATIENT
  Age: 62 Year
  Sex: Male
  Weight: 70 kg

DRUGS (7)
  1. REMICADE [Suspect]
     Indication: CROHN^S DISEASE
     Route: 042
  2. REMICADE [Suspect]
     Indication: CROHN^S DISEASE
     Route: 042
     Dates: start: 20140405
  3. BENADRYL [Concomitant]
     Route: 065
  4. TYLENOL [Concomitant]
     Route: 065
  5. SOLU MEDROL [Concomitant]
     Route: 065
  6. FLAGYL [Concomitant]
     Route: 048
  7. CIPROFLOXACIN [Concomitant]
     Route: 065

REACTIONS (4)
  - Dizziness [Unknown]
  - Blood pressure decreased [Unknown]
  - Infusion related reaction [Unknown]
  - Chills [Recovered/Resolved]
